FAERS Safety Report 19948383 (Version 1)
Quarter: 2021Q4

REPORT INFORMATION
  Report Type: Spontaneous
  Country: US (occurrence: US)
  Receive Date: 20211012
  Receipt Date: 20211012
  Transmission Date: 20220303
  Serious: No
  Sender: FDA-Public Use
  Company Number: US-BAUSCH-BL-2021-033612

PATIENT
  Sex: Female

DRUGS (4)
  1. ERYTHROMYCIN [Suspect]
     Active Substance: ERYTHROMYCIN
     Indication: Eyelid pain
     Route: 047
  2. ERYTHROMYCIN [Suspect]
     Active Substance: ERYTHROMYCIN
     Indication: Eyelid irritation
  3. ERYTHROMYCIN [Suspect]
     Active Substance: ERYTHROMYCIN
     Indication: Product use in unapproved indication
  4. PRESERVISION (UNSPECIFIED) [Concomitant]
     Indication: Product used for unknown indication

REACTIONS (2)
  - Eye disorder [Unknown]
  - Product use in unapproved indication [Unknown]
